FAERS Safety Report 25538380 (Version 1)
Quarter: 2025Q3

REPORT INFORMATION
  Report Type: Spontaneous
  Country: EU (occurrence: EU)
  Receive Date: 20250710
  Receipt Date: 20250710
  Transmission Date: 20251021
  Serious: Yes (Congenital Anomaly)
  Sender: RANBAXY
  Company Number: EU-EMB-M202310211-1

PATIENT
  Sex: Female
  Weight: 2.7 kg

DRUGS (14)
  1. ESOMEPRAZOLE [Suspect]
     Active Substance: ESOMEPRAZOLE
     Indication: Gastritis prophylaxis
     Route: 064
     Dates: start: 202309, end: 202406
  2. ESOMEPRAZOLE [Suspect]
     Active Substance: ESOMEPRAZOLE
     Indication: Gastrooesophageal reflux disease
  3. SULFASALAZINE DELAYED-RELEASE [Suspect]
     Active Substance: SULFASALAZINE
     Indication: Colitis ulcerative
     Route: 064
     Dates: start: 202309, end: 202312
  4. DESLORATADINE [Suspect]
     Active Substance: DESLORATADINE
     Indication: Cholestatic pruritus
     Route: 064
     Dates: start: 202309, end: 202406
  5. BOOSTRIX [Concomitant]
     Active Substance: TETANUS TOXOID, REDUCED DIPHTHERIA TOXOID AND ACELLULAR PERTUSSIS VACCINE ADSORBED, TDAP
     Indication: Immunisation
     Route: 064
  6. Folsaure ABZ [Concomitant]
     Indication: Prophylaxis of neural tube defect
     Dosage: 5 MILLIGRAM, DAILY
     Route: 064
     Dates: start: 202309, end: 202406
  7. MISOPROSTOL [Concomitant]
     Active Substance: MISOPROSTOL
     Indication: Labour induction
     Route: 064
     Dates: start: 202405, end: 202405
  8. GRIPPEIMPFSTOFF [Concomitant]
     Active Substance: INFLUENZA VIRUS VACCINE
     Indication: Immunisation
     Route: 064
  9. AZATHIOPRINE [Suspect]
     Active Substance: AZATHIOPRINE
     Indication: Autoimmune hepatitis
     Route: 064
     Dates: start: 202309, end: 202406
  10. AZATHIOPRINE [Suspect]
     Active Substance: AZATHIOPRINE
     Indication: Colitis ulcerative
  11. ILARIS [Suspect]
     Active Substance: CANAKINUMAB
     Indication: Familial mediterranean fever
     Dosage: 150 MILLIGRAM, 1DOSE/ 6WEEKS
     Route: 064
     Dates: start: 202309, end: 202406
  12. URSODIOL [Suspect]
     Active Substance: URSODIOL
     Indication: Cholangitis sclerosing
     Route: 064
     Dates: start: 202309, end: 202406
  13. ENOXAPARIN SODIUM [Concomitant]
     Active Substance: ENOXAPARIN SODIUM
     Indication: Thrombosis prophylaxis
     Dosage: 40 MILLIGRAM, DAILY
     Route: 064
     Dates: start: 202309, end: 202404
  14. ENOXAPARIN SODIUM [Concomitant]
     Active Substance: ENOXAPARIN SODIUM
     Dosage: 60 MILLIGRAM, DAILY
     Route: 064
     Dates: start: 202404, end: 202406

REACTIONS (2)
  - Atrial septal defect [Not Recovered/Not Resolved]
  - Foetal exposure during pregnancy [Unknown]

NARRATIVE: CASE EVENT DATE: 20240701
